FAERS Safety Report 5255070-8 (Version None)
Quarter: 2007Q1

REPORT INFORMATION
  Report Type: 
  Country: None (occurrence: None)
  Receive Date: 20070228
  Receipt Date: 20070221
  Transmission Date: 20070707
  Serious: Yes (Death)
  Sender: FDA-Public Use
  Company Number: S06-USA-04774-01

PATIENT
  Age: 53 Year
  Sex: Male

DRUGS (3)
  1. CAMPRAL [Suspect]
     Indication: ALCOHOLISM
     Dosage: 666 MG TID PO
     Route: 048
     Dates: start: 20061024, end: 20061001
  2. LEXAPRO [Concomitant]
  3. TRAZODONE HCL [Concomitant]

REACTIONS (1)
  - HEPATIC STEATOSIS [None]
